FAERS Safety Report 16186181 (Version 1)
Quarter: 2019Q2

REPORT INFORMATION
  Report Type: Spontaneous
  Country: ES (occurrence: ES)
  Receive Date: 20190411
  Receipt Date: 20190411
  Transmission Date: 20190711
  Serious: Yes (Hospitalization)
  Sender: FDA-Public Use
  Company Number: ES-TEVA-2019-ES-1034631

PATIENT
  Age: 76 Year
  Sex: Male

DRUGS (4)
  1. BRETARIS GENUAIR, 1 INHALADOR DE 60 DOSIS [Concomitant]
     Indication: BRONCHITIS CHRONIC
     Dosage: 1 PUFF / C 12H
     Route: 055
     Dates: start: 20180716
  2. RELVAR ELLIPTA 92MCG/22MCG POLVO PARA INHALACION  (UNIDOSIS) 30 DOSIS [Concomitant]
     Indication: BRONCHITIS CHRONIC
     Dosage: 1 DOSAGE FORMS DAILY;
     Route: 055
     Dates: start: 20180717
  3. MIRABEGRON (8623A) [Suspect]
     Active Substance: MIRABEGRON
     Indication: DYSURIA
     Dosage: 50 MILLIGRAM DAILY;
     Route: 048
     Dates: start: 20180718, end: 20181128
  4. INDAPAMIDA (1776A) [Suspect]
     Active Substance: INDAPAMIDE
     Indication: HYPERTENSION
     Dosage: 1.5 MILLIGRAM DAILY;
     Route: 048
     Dates: start: 20181110, end: 20181128

REACTIONS (2)
  - Hyponatraemia [Recovered/Resolved]
  - Confusional state [Recovered/Resolved]

NARRATIVE: CASE EVENT DATE: 20181116
